FAERS Safety Report 8195663-1 (Version None)
Quarter: 2012Q1

REPORT INFORMATION
  Report Type: 
  Country: None (occurrence: None)
  Receive Date: 20120308
  Receipt Date: 20120224
  Transmission Date: 20120608
  Serious: Yes (Other)
  Sender: FDA-Public Use
  Company Number: DE-ELI_LILLY_AND_COMPANY-DE201202002910

PATIENT
  Sex: Female

DRUGS (3)
  1. OXYCODONE HYDROCHLORIDE [Concomitant]
     Dosage: 40 MG, TID
  2. CYMBALTA [Suspect]
     Indication: POLYNEUROPATHY
     Dosage: 30 MG, UNKNOWN
     Route: 048
  3. OXYCODONE HYDROCHLORIDE [Concomitant]
     Indication: BONE PAIN
     Dosage: 20 MG, UNKNOWN
     Dates: start: 20070101

REACTIONS (4)
  - KNEE ARTHROPLASTY [None]
  - VERTIGO [None]
  - CIRCULATORY COLLAPSE [None]
  - FALL [None]
